FAERS Safety Report 8310311-5 (Version None)
Quarter: 2012Q2

REPORT INFORMATION
  Report Type: 
  Country: None (occurrence: None)
  Receive Date: 20120425
  Receipt Date: 20120419
  Transmission Date: 20120825
  Serious: Yes (Congenital Anomaly, Other)
  Sender: FDA-Public Use
  Company Number: PHFR2012GB002071

PATIENT
  Sex: Female
  Weight: 2.97 kg

DRUGS (4)
  1. CARBAMAZEPINE [Suspect]
     Indication: EPILEPSY
     Dosage: UNK UKN, UNK
  2. CLOBAZAM [Suspect]
     Indication: EPILEPSY
     Dosage: UNK UKN, UNK
  3. ZONEGRAN [Suspect]
     Indication: EPILEPSY
     Dosage: UNK UKN, UNK
  4. PHENOBARBITAL TAB [Suspect]
     Indication: EPILEPSY
     Dosage: UNK UKN, UNK

REACTIONS (8)
  - EPILEPSY [None]
  - ANORECTAL DISORDER [None]
  - MICROCEPHALY [None]
  - HYPOGLYCAEMIA [None]
  - FOETAL EXPOSURE DURING PREGNANCY [None]
  - KIDNEY MALFORMATION [None]
  - CONGENITAL TRACHEOMALACIA [None]
  - ANAL ATRESIA [None]
